FAERS Safety Report 6147770-2 (Version None)
Quarter: 2009Q2

REPORT INFORMATION
  Report Type: 
  Country: None (occurrence: None)
  Receive Date: 20090408
  Receipt Date: 20090330
  Transmission Date: 20091009
  Serious: Yes (Other)
  Sender: FDA-Public Use
  Company Number: US-AVENTIS-200912651US

PATIENT
  Age: 92 Year
  Sex: Female

DRUGS (6)
  1. LANTUS [Suspect]
     Route: 058
  2. LIPITOR [Concomitant]
     Dosage: DOSE: UNK
  3. FUROSEMIDE [Concomitant]
     Dosage: DOSE: UNK
  4. AMLODIPINE [Concomitant]
     Dosage: DOSE: UNK
  5. CARVEDILOL [Concomitant]
     Dosage: DOSE: UNK
  6. ALLOPURINOL [Concomitant]
     Dosage: DOSE: UNK

REACTIONS (1)
  - UPPER LIMB FRACTURE [None]
